FAERS Safety Report 9935111 (Version 1)
Quarter: 2014Q1

REPORT INFORMATION
  Report Type: Spontaneous
  Country: DE (occurrence: DE)
  Receive Date: 20140228
  Receipt Date: 20140228
  Transmission Date: 20141002
  Serious: Yes (Other)
  Sender: FDA-Public Use
  Company Number: DE-PFIZER INC-2014053394

PATIENT
  Age: 69 Year
  Sex: Male
  Weight: 69 kg

DRUGS (1)
  1. SORTIS [Suspect]
     Indication: CORONARY ARTERY BYPASS
     Dosage: 40 MG, 1X/DAY
     Route: 048
     Dates: start: 20130906, end: 20131123

REACTIONS (2)
  - Gamma-glutamyltransferase increased [Recovered/Resolved]
  - Depression [Recovered/Resolved]
